FAERS Safety Report 9346109 (Version 2)
Quarter: 2013Q2

REPORT INFORMATION
  Report Type: Spontaneous
  Country: FR (occurrence: FR)
  Receive Date: 20130613
  Receipt Date: 20130627
  Transmission Date: 20140414
  Serious: Yes (Other)
  Sender: FDA-Public Use
  Company Number: FR-BRISTOL-MYERS SQUIBB COMPANY-19010990

PATIENT
  Age: 58 Year
  Sex: Female
  Weight: 40 kg

DRUGS (1)
  1. ERBITUX SOLN FOR INF [Suspect]
     Indication: ADENOCARCINOMA OF COLON
     Dosage: SOLN FOR INJECTION
     Route: 042
     Dates: start: 20130521, end: 20130521

REACTIONS (1)
  - Vitreous detachment [Recovering/Resolving]
